FAERS Safety Report 8998969 (Version 1)
Quarter: 2013Q1

REPORT INFORMATION
  Report Type: Spontaneous
  Country: US (occurrence: US)
  Receive Date: 20130103
  Receipt Date: 20130103
  Transmission Date: 20140127
  Serious: No
  Sender: FDA-Public Use
  Company Number: US-PFIZER INC-2012331278

PATIENT
  Age: 72 Year
  Sex: Female
  Weight: 95.24 kg

DRUGS (1)
  1. METHOTREXATE SODIUM [Suspect]
     Dosage: UNK

REACTIONS (2)
  - Alopecia [Unknown]
  - Macrocytosis [Unknown]
